FAERS Safety Report 14157616 (Version 3)
Quarter: 2018Q3

REPORT INFORMATION
  Report Type: Spontaneous
  Country: AU (occurrence: AU)
  Receive Date: 20171105
  Receipt Date: 20180810
  Transmission Date: 20181010
  Serious: Yes (Hospitalization)
  Sender: FDA-Public Use
  Company Number: AU-009507513-1711AUS001475

PATIENT

DRUGS (2)
  1. GLICLAZIDE [Interacting]
     Active Substance: GLICLAZIDE
  2. SITAGLIPTIN PHOSPHATE [Suspect]
     Active Substance: SITAGLIPTIN PHOSPHATE
     Route: 048

REACTIONS (2)
  - Hypoglycaemia [Unknown]
  - Drug interaction [Unknown]
